FAERS Safety Report 8537057-2 (Version None)
Quarter: 2012Q3

REPORT INFORMATION
  Report Type: 
  Country: None (occurrence: None)
  Receive Date: 20120725
  Receipt Date: 20120719
  Transmission Date: 20120928
  Serious: Yes (Death)
  Sender: FDA-Public Use
  Company Number: KR-PFIZER INC-2012174444

PATIENT
  Age: 47 Year
  Sex: Male

DRUGS (2)
  1. PIPERACILLIN AND TAZOBACTAM [Suspect]
     Indication: SOFT TISSUE INFECTION
     Dosage: 3 G, 3X/DAY
     Route: 042
  2. PIPERACILLIN AND TAZOBACTAM [Suspect]
     Indication: CELLULITIS
     Dosage: 2.25 G, 3X/DAY
     Route: 042

REACTIONS (1)
  - SEPTIC SHOCK [None]
